FAERS Safety Report 9099147 (Version 1)
Quarter: 2013Q1

REPORT INFORMATION
  Report Type: Spontaneous
  Country: CH (occurrence: CH)
  Receive Date: 20130213
  Receipt Date: 20130213
  Transmission Date: 20140127
  Serious: Yes (Hospitalization, Other)
  Sender: FDA-Public Use
  Company Number: CH-009507513-1302CHE003291

PATIENT
  Age: 59 Year
  Sex: Male

DRUGS (6)
  1. REMERON [Suspect]
     Dosage: 10 DF, ONCE
     Route: 048
     Dates: start: 20121008, end: 20121008
  2. LORAZEPAM [Suspect]
     Dosage: 50 DF, ONCE
     Route: 048
     Dates: start: 20121008, end: 20121008
  3. ZOLPIDEM [Suspect]
     Dosage: 12 DF, ONCE
     Route: 048
     Dates: start: 20121008, end: 20121008
  4. CLORAZEPATE DIPOTASSIUM [Suspect]
     Dosage: 4 DF, ONCE
     Route: 048
     Dates: start: 20121008, end: 20121008
  5. OLANZAPINE [Suspect]
     Dosage: UNK
     Route: 048
     Dates: start: 20121008, end: 20121008
  6. DULOXETINE [Suspect]
     Dosage: UNK
     Route: 048
     Dates: start: 20121008, end: 20121008

REACTIONS (7)
  - Coma [Recovered/Resolved]
  - Suicide attempt [Recovered/Resolved]
  - Oxygen saturation decreased [Recovered/Resolved]
  - Blood creatine phosphokinase increased [Recovered/Resolved]
  - Pneumonia aspiration [Recovered/Resolved]
  - Body temperature increased [Recovered/Resolved]
  - Blood creatine phosphokinase increased [None]
